FAERS Safety Report 6964743-8 (Version None)
Quarter: 2010Q3

REPORT INFORMATION
  Report Type: 
  Country: None (occurrence: None)
  Receive Date: 20100903
  Receipt Date: 20100823
  Transmission Date: 20110219
  Serious: Yes (Other)
  Sender: FDA-Public Use
  Company Number: US-PFIZER INC-2008062143

PATIENT
  Age: 54 Year
  Sex: Female

DRUGS (3)
  1. CABERGOLINE [Suspect]
     Indication: MULTIPLE ENDOCRINE ADENOMATOSIS TYPE I
     Dosage: 0.5 MG, 2X/WEEK
  2. CABERGOLINE [Suspect]
     Indication: PROLACTINOMA
  3. LEVOTHYROXINE [Concomitant]
     Indication: THYROID HORMONE REPLACEMENT THERAPY
     Dosage: 50 UG, 1X/DAY

REACTIONS (2)
  - CEREBROSPINAL FLUID RHINORRHOEA [None]
  - PNEUMOCEPHALUS [None]
